FAERS Safety Report 16052607 (Version 1)
Quarter: 2019Q1

REPORT INFORMATION
  Report Type: Spontaneous
  Country: SE (occurrence: SE)
  Receive Date: 20190308
  Receipt Date: 20190308
  Transmission Date: 20190418
  Serious: Yes (Hospitalization)
  Sender: FDA-Public Use
  Company Number: SE-TEVA-2019-SE-1020012

PATIENT
  Age: 25 Year
  Sex: Female

DRUGS (1)
  1. DIMOR 2 MG FILMDRAGERAD TABLETT [Suspect]
     Active Substance: LOPERAMIDE HYDROCHLORIDE
     Dosage: ABUSE DURING 7 YEARS, THE LAST DOSE OF 2018-05-20, THEN 16X2 MG = 32 MG
     Route: 048

REACTIONS (3)
  - Drug abuse [Unknown]
  - Intentional overdose [Unknown]
  - Chest pain [Unknown]

NARRATIVE: CASE EVENT DATE: 2018
